FAERS Safety Report 5939683-3 (Version None)
Quarter: 2008Q4

REPORT INFORMATION
  Report Type: 
  Country: None (occurrence: None)
  Receive Date: 20081030
  Receipt Date: 20081030
  Transmission Date: 20090506
  Serious: No
  Sender: FDA-Public Use
  Company Number: None

PATIENT
  Age: 17 Year
  Sex: Female
  Weight: 59.4212 kg

DRUGS (1)
  1. KENALOG [Suspect]
     Indication: CYST
     Dosage: 5 MG 1 INTRALYMPHATIC, 1 INJECTION
     Route: 027
     Dates: start: 20080501, end: 20080501

REACTIONS (3)
  - BREAST ATROPHY [None]
  - CUSHINGOID [None]
  - WEIGHT INCREASED [None]
